FAERS Safety Report 6285042-6 (Version None)
Quarter: 2009Q3

REPORT INFORMATION
  Report Type: 
  Country: None (occurrence: None)
  Receive Date: 20090727
  Receipt Date: 20090722
  Transmission Date: 20100115
  Serious: Yes (Other)
  Sender: FDA-Public Use
  Company Number: JP-BAYER-200812129BYL

PATIENT
  Age: 63 Year
  Sex: Female
  Weight: 46 kg

DRUGS (5)
  1. NEXAVAR [Suspect]
     Indication: RENAL CELL CARCINOMA STAGE IV
     Dosage: TOTAL DAILY DOSE: 800 MG  UNIT DOSE: 200 MG
     Route: 048
     Dates: start: 20080423, end: 20081104
  2. NEXAVAR [Suspect]
     Dosage: AS USED: 400 MG  UNIT DOSE: 200 MG
     Route: 048
     Dates: start: 20081105, end: 20090106
  3. NEXAVAR [Suspect]
     Dosage: UNIT DOSE: 200 MG
     Route: 048
     Dates: start: 20090107
  4. MEDICON [Concomitant]
     Route: 048
     Dates: start: 20090107
  5. CODEINE PHOSPHATE [Concomitant]
     Route: 048
     Dates: start: 20090107

REACTIONS (6)
  - DIARRHOEA [None]
  - GASTROENTERITIS RADIATION [None]
  - HAEMOPTYSIS [None]
  - HYPOPHOSPHATAEMIA [None]
  - MELAENA [None]
  - PANCREATIC ENZYMES INCREASED [None]
